FAERS Safety Report 4430530-8 (Version None)
Quarter: 2004Q3

REPORT INFORMATION
  Report Type: 
  Country: None (occurrence: None)
  Receive Date: 20040818
  Receipt Date: 20040730
  Transmission Date: 20050211
  Serious: Yes (Hospitalization)
  Sender: FDA-Public Use
  Company Number: EWC040840114

PATIENT
  Age: 19 Year
  Sex: Male
  Weight: 100 kg

DRUGS (1)
  1. FLUOXETINE [Suspect]
     Indication: DYSPHORIA
     Dosage: 20 MG/1 DAY
     Dates: start: 20040308, end: 20040529

REACTIONS (3)
  - NEPHRITIS [None]
  - RASH [None]
  - URINE OSMOLARITY DECREASED [None]
